FAERS Safety Report 9145290 (Version 1)
Quarter: 2013Q1

REPORT INFORMATION
  Report Type: Spontaneous
  Country: SE (occurrence: SE)
  Receive Date: 20130307
  Receipt Date: 20130307
  Transmission Date: 20140127
  Serious: Yes (Other)
  Sender: FDA-Public Use
  Company Number: SE-AMGEN-SWESP2013013488

PATIENT
  Age: 68 Year
  Sex: Male

DRUGS (2)
  1. NPLATE [Suspect]
     Indication: IDIOPATHIC THROMBOCYTOPENIC PURPURA
     Dosage: 250 MUG, UNK
     Dates: start: 20120809
  2. DELTISON [Concomitant]
     Dosage: 100 MUG, UNK

REACTIONS (4)
  - Therapeutic response decreased [Unknown]
  - Splenectomy [Unknown]
  - Platelet count decreased [Unknown]
  - Platelet count increased [Unknown]
